FAERS Safety Report 18981731 (Version 1)
Quarter: 2021Q1

REPORT INFORMATION
  Report Type: Report from Study
  Country: US (occurrence: US)
  Receive Date: 20210308
  Receipt Date: 20210308
  Transmission Date: 20210420
  Serious: Yes (Hospitalization)
  Sender: FDA-Public Use
  Company Number: US-BAYER-2021-094988

PATIENT
  Age: 77 Year
  Sex: Female
  Weight: 69.39 kg

DRUGS (2)
  1. OPSUMIT [Concomitant]
     Active Substance: MACITENTAN
     Dosage: UNK
  2. ADEMPAS [Suspect]
     Active Substance: RIOCIGUAT
     Indication: PULMONARY ARTERIAL HYPERTENSION
     Dosage: 0.5 MG, TID
     Route: 048
     Dates: start: 20180418

REACTIONS (5)
  - Hypotension [Recovering/Resolving]
  - Hospitalisation [None]
  - Condition aggravated [Recovering/Resolving]
  - Gait disturbance [None]
  - Illness [None]

NARRATIVE: CASE EVENT DATE: 2020
